FAERS Safety Report 13445898 (Version 1)
Quarter: 2017Q2

REPORT INFORMATION
  Report Type: Spontaneous
  Country: US (occurrence: US)
  Receive Date: 20170417
  Receipt Date: 20170417
  Transmission Date: 20170830
  Serious: No
  Sender: FDA-Public Use
  Company Number: US-BION-005922

PATIENT
  Age: 53 Year
  Sex: Female
  Weight: 43 kg

DRUGS (1)
  1. ALEVE [Suspect]
     Active Substance: NAPROXEN SODIUM
     Indication: PAIN
     Dosage: ALSO RECEIVED ORAL ALEVE CAPLET (NAPROXEN SODIUM) FILM-COATED TABLET 1 DF FROM 2013 AND THEN WITHDRA
     Route: 048
     Dates: end: 2013

REACTIONS (3)
  - Drug ineffective [Not Recovered/Not Resolved]
  - Expired product administered [Not Recovered/Not Resolved]
  - Product use issue [Unknown]

NARRATIVE: CASE EVENT DATE: 2011
